FAERS Safety Report 9772409 (Version 1)
Quarter: 2013Q4

REPORT INFORMATION
  Report Type: Spontaneous
  Country: US (occurrence: None)
  Receive Date: 20131217
  Receipt Date: 20131217
  Transmission Date: 20140711
  Serious: Yes (Hospitalization)
  Sender: FDA-Public Use
  Company Number: UTC-040925

PATIENT
  Age: 28 Year
  Sex: Female
  Weight: 68.18 kg

DRUGS (3)
  1. REMODULIN [Suspect]
     Indication: PULMONARY ARTERIAL HYPERTENSION
     Dosage: (0.103 UG/KG, 1 IN 1 MIN)
     Route: 058
     Dates: start: 20130117
  2. REVATIO (SILDENAFIL CITRATE) [Concomitant]
  3. LETAIRIS (AMBRISENTAN) (TABLETS) [Concomitant]

REACTIONS (1)
  - Infusion site haematoma [None]
